FAERS Safety Report 16349481 (Version 1)
Quarter: 2019Q2

REPORT INFORMATION
  Report Type: Spontaneous
  Country: DE (occurrence: DE)
  Receive Date: 20190523
  Receipt Date: 20190523
  Transmission Date: 20190711
  Serious: Yes (Hospitalization, Other)
  Sender: FDA-Public Use
  Company Number: DE-PFIZER INC-2019213069

PATIENT
  Age: 54 Year
  Sex: Female

DRUGS (7)
  1. TAVOR (LORAZEPAM) [Suspect]
     Active Substance: LORAZEPAM
     Dosage: UNK UNK, DAILY (2-4 MG)
     Dates: start: 20071109, end: 20071114
  2. LAMICTAL [Concomitant]
     Active Substance: LAMOTRIGINE
     Dosage: 200 MG, 1X/DAY
     Dates: start: 20071101, end: 20071113
  3. APONAL [Interacting]
     Active Substance: DOXEPIN HYDROCHLORIDE
     Dosage: 150 MG, 1X/DAY
     Dates: start: 20071110, end: 20071113
  4. APONAL [Interacting]
     Active Substance: DOXEPIN HYDROCHLORIDE
     Dosage: 100 MG, 1X/DAY
     Dates: start: 20071101, end: 20071109
  5. LAMICTAL [Concomitant]
     Active Substance: LAMOTRIGINE
     Dosage: 200 MG, 1X/DAY
     Dates: start: 20071115, end: 20080103
  6. APONAL [Interacting]
     Active Substance: DOXEPIN HYDROCHLORIDE
     Dosage: 50 MG, 1X/DAY
     Dates: start: 20071115, end: 20080103
  7. TRAMADOL. [Concomitant]
     Active Substance: TRAMADOL
     Dosage: 100 MG, 1X/DAY
     Dates: start: 20041101, end: 20071112

REACTIONS (5)
  - Drug interaction [Unknown]
  - Hyponatraemia [Recovered/Resolved]
  - Seizure [Recovered/Resolved]
  - Gastrointestinal haemorrhage [Recovered/Resolved]
  - Oesophagitis [Recovered/Resolved]

NARRATIVE: CASE EVENT DATE: 20071114
